FAERS Safety Report 16202794 (Version 6)
Quarter: 2019Q3

REPORT INFORMATION
  Report Type: Spontaneous
  Country: US (occurrence: US)
  Receive Date: 20190416
  Receipt Date: 20190830
  Transmission Date: 20191004
  Serious: Yes (Other)
  Sender: FDA-Public Use
  Company Number: US-PFIZER INC-2019158394

PATIENT
  Age: 72 Year
  Sex: Female
  Weight: 68.4 kg

DRUGS (3)
  1. LYRICA [Suspect]
     Active Substance: PREGABALIN
     Indication: PAIN IN EXTREMITY
  2. LYRICA [Suspect]
     Active Substance: PREGABALIN
     Indication: DIABETIC NEUROPATHY
  3. LYRICA [Suspect]
     Active Substance: PREGABALIN
     Indication: PAIN
     Dosage: 50 MG, 2X/DAY (TAKE 1 IN THE MORNING AND 1 IN THE EVENING/NIGHT.)
     Route: 048

REACTIONS (5)
  - Mental impairment [Unknown]
  - Emotional disorder [Unknown]
  - Limb injury [Recovering/Resolving]
  - Nervousness [Unknown]
  - Product dose omission [Unknown]

NARRATIVE: CASE EVENT DATE: 20190624
